FAERS Safety Report 6712867-2 (Version None)
Quarter: 2010Q2

REPORT INFORMATION
  Report Type: 
  Country: None (occurrence: None)
  Receive Date: 20100505
  Receipt Date: 20100505
  Transmission Date: 20101027
  Serious: Yes (Life-Threatening, Hospitalization)
  Sender: FDA-Public Use
  Company Number: None

PATIENT
  Sex: Female

DRUGS (2)
  1. ISOVUE-300 [Suspect]
     Indication: COMPUTERISED TOMOGRAM THORAX
     Dosage: ISOVUE 300 70ML X1 IV INFUSION
     Route: 042
     Dates: start: 20100427
  2. ISOVUE-300 [Suspect]
     Indication: HAEMOPTYSIS
     Dosage: ISOVUE 300 70ML X1 IV INFUSION
     Route: 042
     Dates: start: 20100427

REACTIONS (2)
  - CARDIO-RESPIRATORY ARREST [None]
  - RESPIRATORY DISTRESS [None]
